FAERS Safety Report 5675589-5 (Version None)
Quarter: 2008Q1

REPORT INFORMATION
  Report Type: 
  Country: None (occurrence: None)
  Receive Date: 20080321
  Receipt Date: 20080313
  Transmission Date: 20080703
  Serious: Yes (Other)
  Sender: FDA-Public Use
  Company Number: US-JNJFOC-20080304355

PATIENT
  Sex: Female
  Weight: 53.07 kg

DRUGS (9)
  1. DURAGESIC-100 [Suspect]
     Route: 062
  2. DURAGESIC-100 [Suspect]
     Route: 062
  3. DURAGESIC-100 [Suspect]
     Route: 062
  4. DURAGESIC-100 [Suspect]
     Route: 062
  5. DURAGESIC-100 [Suspect]
     Route: 062
  6. DURAGESIC-100 [Suspect]
     Indication: PAIN
     Route: 062
  7. ENBREL [Concomitant]
     Indication: ARTHRITIS
     Route: 058
  8. METHOTREXATE [Concomitant]
     Indication: ARTHRITIS
     Route: 048
  9. GLUCOPHAGE [Concomitant]
     Indication: DIABETES MELLITUS
     Route: 048

REACTIONS (3)
  - APPLICATION SITE RASH [None]
  - RESTLESS LEGS SYNDROME [None]
  - WRONG TECHNIQUE IN DRUG USAGE PROCESS [None]
